FAERS Safety Report 23868904 (Version 2)
Quarter: 2024Q3

REPORT INFORMATION
  Report Type: Report from Study
  Country: CO (occurrence: None)
  Receive Date: 20240517
  Receipt Date: 20240703
  Transmission Date: 20241017
  Serious: Yes (Hospitalization, Disabling, Other)
  Sender: ASTRAZENECA
  Company Number: 2024A111894

PATIENT
  Age: 3743 Week
  Sex: Male
  Weight: 74 kg

DRUGS (1)
  1. IMFINZI [Suspect]
     Active Substance: DURVALUMAB
     Indication: Lung neoplasm malignant
     Route: 042
     Dates: start: 20230831

REACTIONS (6)
  - Intracranial aneurysm [Unknown]
  - Blindness [Unknown]
  - Anuria [Unknown]
  - Dysuria [Not Recovered/Not Resolved]
  - Pain [Unknown]
  - Pyrexia [Unknown]

NARRATIVE: CASE EVENT DATE: 20240506
